FAERS Safety Report 21648890 (Version 1)
Quarter: 2022Q4

REPORT INFORMATION
  Report Type: Spontaneous
  Country: JP (occurrence: JP)
  Receive Date: 20221128
  Receipt Date: 20221128
  Transmission Date: 20230113
  Serious: Yes (Death, Other)
  Sender: FDA-Public Use
  Company Number: JP-AMGEN-JPNSP2022203180

PATIENT
  Age: 7 Year
  Sex: Male

DRUGS (1)
  1. BLINCYTO [Suspect]
     Active Substance: BLINATUMOMAB
     Indication: Precursor B-lymphoblastic lymphoma recurrent
     Dosage: UNK
     Route: 065

REACTIONS (9)
  - Engraftment syndrome [Fatal]
  - Acute graft versus host disease [Fatal]
  - Thrombotic microangiopathy [Fatal]
  - Hepatic failure [Fatal]
  - Gastrointestinal haemorrhage [Fatal]
  - Venoocclusive disease [Fatal]
  - Venoocclusive liver disease [Fatal]
  - Blast cell count increased [Unknown]
  - Therapy non-responder [Unknown]
